FAERS Safety Report 19916682 (Version 1)
Quarter: 2021Q4

REPORT INFORMATION
  Report Type: Spontaneous
  Country: US (occurrence: US)
  Receive Date: 20211004
  Receipt Date: 20211004
  Transmission Date: 20220303
  Serious: No
  Sender: FDA-Public Use
  Company Number: None

PATIENT
  Age: 63 Year
  Sex: Male
  Weight: 53 kg

DRUGS (3)
  1. CAPECITABINE [Suspect]
     Active Substance: CAPECITABINE
     Indication: Rectal cancer
     Dosage: OTHER FREQUENCY:BID FOR 14/21 DAYS;
     Route: 048
     Dates: start: 20210602
  2. Vitamin B12 1000mcg [Concomitant]
  3. FOLIC ACID [Concomitant]
     Active Substance: FOLIC ACID

REACTIONS (2)
  - Feeling hot [None]
  - Dyspnoea [None]

NARRATIVE: CASE EVENT DATE: 20211004
